FAERS Safety Report 8985335 (Version 1)
Quarter: 2012Q4

REPORT INFORMATION
  Report Type: 
  Country: US (occurrence: US)
  Receive Date: 20121226
  Receipt Date: 20121226
  Transmission Date: 20130627
  Serious: No
  Sender: FDA-Public Use
  Company Number: US-ABBOTT-12P-163-0991607-00

PATIENT
  Age: 93 Year
  Sex: Male
  Weight: 73.55 kg

DRUGS (1)
  1. LUPRON DEPOT [Suspect]
     Indication: PROSTATE CANCER
     Dates: start: 20071010, end: 20120827

REACTIONS (1)
  - Expired drug administered [Unknown]
